FAERS Safety Report 5932492-0 (Version None)
Quarter: 2008Q4

REPORT INFORMATION
  Report Type: 
  Country: None (occurrence: None)
  Receive Date: 20081028
  Receipt Date: 20081022
  Transmission Date: 20090506
  Serious: Yes (Hospitalization)
  Sender: FDA-Public Use
  Company Number: US-ASTRAZENECA-2008UW23465

PATIENT
  Sex: Male
  Weight: 96 kg

DRUGS (6)
  1. ARIMIDEX [Suspect]
     Route: 048
     Dates: end: 20071211
  2. ANDROGEL [Suspect]
     Indication: BLOOD TESTOSTERONE DECREASED
  3. ANDROGEL [Suspect]
     Dates: end: 20071211
  4. ANDROGEL [Suspect]
  5. AVODART [Suspect]
  6. LIPITOR [Concomitant]

REACTIONS (14)
  - ANAEMIA [None]
  - BLOOD TESTOSTERONE INCREASED [None]
  - GASTRITIS [None]
  - GASTROOESOPHAGEAL REFLUX DISEASE [None]
  - HYPERCOAGULATION [None]
  - ILEUS PARALYTIC [None]
  - MESENTERIC VASCULAR INSUFFICIENCY [None]
  - MESENTERIC VEIN THROMBOSIS [None]
  - OFF LABEL USE [None]
  - ORAL CANDIDIASIS [None]
  - PLEURAL EFFUSION [None]
  - PORTAL VEIN THROMBOSIS [None]
  - PYREXIA [None]
  - WHITE BLOOD CELL COUNT INCREASED [None]
